FAERS Safety Report 13746397 (Version 1)
Quarter: 2017Q3

REPORT INFORMATION
  Report Type: Spontaneous
  Country: FR (occurrence: FR)
  Receive Date: 20170712
  Receipt Date: 20170712
  Transmission Date: 20171127
  Serious: Yes (Other)
  Sender: FDA-Public Use
  Company Number: FR-BAYER-2017-131018

PATIENT
  Sex: Female

DRUGS (1)
  1. MIRENA [Suspect]
     Active Substance: LEVONORGESTREL
     Dosage: 20 MCG/24HR, CONT
     Route: 015

REACTIONS (8)
  - Irritability [Unknown]
  - Tooth disorder [Unknown]
  - Gastric disorder [Unknown]
  - Pain [Unknown]
  - Weight increased [Unknown]
  - Haemangioma [Unknown]
  - Loss of libido [Unknown]
  - Vision blurred [Unknown]
